FAERS Safety Report 21038584 (Version 1)
Quarter: 2022Q3

REPORT INFORMATION
  Report Type: Spontaneous
  Country: US (occurrence: US)
  Receive Date: 20220704
  Receipt Date: 20220704
  Transmission Date: 20221027
  Serious: Yes (Other)
  Sender: FDA-Public Use
  Company Number: US-ABBVIE-22K-163-4452951-00

PATIENT

DRUGS (1)
  1. SYNTHROID [Suspect]
     Active Substance: LEVOTHYROXINE SODIUM
     Indication: Product used for unknown indication
     Route: 048

REACTIONS (6)
  - Thyroidectomy [Unknown]
  - Thyroxine decreased [Unknown]
  - Dyspepsia [Unknown]
  - Blood thyroid stimulating hormone abnormal [Unknown]
  - Drug ineffective [Unknown]
  - Therapeutic product effect decreased [Unknown]
